FAERS Safety Report 4603043-8 (Version None)
Quarter: 2005Q1

REPORT INFORMATION
  Report Type: 
  Country: None (occurrence: None)
  Receive Date: 20050307
  Receipt Date: 20050224
  Transmission Date: 20050727
  Serious: Yes (Death, Hospitalization, Other)
  Sender: FDA-Public Use
  Company Number: 2005036475

PATIENT
  Age: 49 Year
  Sex: Female
  Weight: 76 kg

DRUGS (3)
  1. TAHOR (ATORVASTATIN) [Suspect]
     Indication: ILL-DEFINED DISORDER
     Dosage: 10 MG (1 IN 1 D), ORAL
     Route: 048
  2. TAMOXIFEN CITRATE [Suspect]
     Indication: BREAST CANCER
     Dosage: 20 MG (1 IN 1 D), ORAL
     Route: 048
     Dates: start: 20011001, end: 20050128
  3. VERAPAMIL [Suspect]
     Indication: ESSENTIAL HYPERTENSION
     Dosage: 240 MG (DAILY), ORAL
     Route: 048

REACTIONS (5)
  - ACUTE MYELOID LEUKAEMIA [None]
  - DISSEMINATED INTRAVASCULAR COAGULATION [None]
  - HEPATIC FAILURE [None]
  - PANCYTOPENIA [None]
  - THROMBOSIS [None]
